FAERS Safety Report 13837540 (Version 3)
Quarter: 2018Q2

REPORT INFORMATION
  Report Type: Spontaneous
  Country: JP (occurrence: JP)
  Receive Date: 20170804
  Receipt Date: 20180618
  Transmission Date: 20180711
  Serious: Yes (Other)
  Sender: FDA-Public Use
  Company Number: JP-GILEAD-2017-0286136

PATIENT
  Age: 44 Year
  Sex: Male

DRUGS (2)
  1. ZEFIX [Concomitant]
     Active Substance: LAMIVUDINE
     Indication: HEPATITIS B
     Dosage: 100 MG, QD
     Dates: start: 2012
  2. HEPSERA [Suspect]
     Active Substance: ADEFOVIR DIPIVOXIL
     Indication: HEPATITIS B
     Dosage: 10 MG, QD
     Route: 048
     Dates: start: 2012, end: 201602

REACTIONS (11)
  - Fanconi syndrome acquired [Unknown]
  - Hyperphosphatasaemia [Unknown]
  - Stress fracture [Recovered/Resolved]
  - Foot fracture [Recovered/Resolved]
  - Arthralgia [Recovered/Resolved]
  - Hypophosphataemia [Recovering/Resolving]
  - Pain in extremity [Recovered/Resolved]
  - Osteoporosis [Unknown]
  - Osteomalacia [Recovering/Resolving]
  - Renal impairment [Recovering/Resolving]
  - Peripheral swelling [Recovered/Resolved]

NARRATIVE: CASE EVENT DATE: 201404
